FAERS Safety Report 7732764-3 (Version None)
Quarter: 2011Q3

REPORT INFORMATION
  Report Type: 
  Country: None (occurrence: None)
  Receive Date: 20110819
  Receipt Date: 20110809
  Transmission Date: 20111222
  Serious: Yes (Hospitalization, Other)
  Sender: FDA-Public Use
  Company Number: AEDEU201100188

PATIENT
  Age: 78 Year
  Sex: Male

DRUGS (2)
  1. GAMUNEX [Suspect]
     Indication: AUTOIMMUNE NEUROPATHY
     Dosage: IV
     Route: 042
     Dates: start: 20110301
  2. JONOSTERIL /01263001/ [Concomitant]

REACTIONS (9)
  - WHEELCHAIR USER [None]
  - WRONG TECHNIQUE IN DRUG USAGE PROCESS [None]
  - PULMONARY EMBOLISM [None]
  - DRUG ADMINISTRATION ERROR [None]
  - THROMBOSIS [None]
  - VASCULAR OCCLUSION [None]
  - MOBILITY DECREASED [None]
  - HYPERCOAGULATION [None]
  - PHLEBITIS SUPERFICIAL [None]
